FAERS Safety Report 10184928 (Version 1)
Quarter: 2014Q2

REPORT INFORMATION
  Report Type: Spontaneous
  Country: US (occurrence: None)
  Receive Date: 20140520
  Receipt Date: 20140520
  Transmission Date: 20141212
  Serious: Yes (Hospitalization)
  Sender: FDA-Public Use
  Company Number: None

PATIENT
  Age: 68 Year
  Sex: Female

DRUGS (4)
  1. REGADENOSON [Suspect]
     Indication: CARDIAC STRESS TEST
     Route: 042
     Dates: start: 20120926, end: 20120926
  2. ASPIRIN [Concomitant]
  3. CARVEDILOL [Concomitant]
  4. LISINOPRIL [Concomitant]

REACTIONS (5)
  - Dyspnoea [None]
  - Loss of consciousness [None]
  - Pulse absent [None]
  - Fluid overload [None]
  - Pulmonary oedema [None]
